FAERS Safety Report 23079878 (Version 1)
Quarter: 2023Q4

REPORT INFORMATION
  Report Type: Spontaneous
  Country: US (occurrence: US)
  Receive Date: 20231018
  Receipt Date: 20231018
  Transmission Date: 20240110
  Serious: No
  Sender: FDA-Public Use
  Company Number: US-La Jolla Pharmaceutical Company-2023TP000012

PATIENT
  Age: 54 Year
  Sex: Female

DRUGS (5)
  1. XERAVA [Suspect]
     Active Substance: ERAVACYCLINE DIHYDROCHLORIDE
     Indication: Mycobacterium abscessus infection
     Route: 042
  2. XERAVA [Suspect]
     Active Substance: ERAVACYCLINE DIHYDROCHLORIDE
     Indication: Pneumonia
  3. BEDAQUILINE [Concomitant]
     Active Substance: BEDAQUILINE
     Indication: Mycobacterium abscessus infection
  4. IMIPENEM [Concomitant]
     Active Substance: IMIPENEM
     Indication: Mycobacterium abscessus infection
  5. AMIKACIN [Concomitant]
     Active Substance: AMIKACIN
     Indication: Mycobacterium abscessus infection

REACTIONS (3)
  - Transaminases increased [Unknown]
  - Diarrhoea [Unknown]
  - Off label use [Unknown]
